FAERS Safety Report 18218899 (Version 2)
Quarter: 2020Q4

REPORT INFORMATION
  Report Type: Spontaneous
  Country: TN (occurrence: TN)
  Receive Date: 20200901
  Receipt Date: 20201013
  Transmission Date: 20210113
  Serious: Yes (Death, Other)
  Sender: FDA-Public Use
  Company Number: TN-BIOVITRUM-2020TN4652

PATIENT
  Age: 2 Month

DRUGS (2)
  1. ORFADIN [Suspect]
     Active Substance: NITISINONE
     Indication: TYROSINAEMIA
     Dosage: 2 CAPSULE OF 5 MG (UNIT DOSE 1.7 MG/KG)
     Dates: start: 20130719
  2. ORFADIN [Suspect]
     Active Substance: NITISINONE
     Dosage: 2 MG/KG

REACTIONS (6)
  - Hepatic mass [Unknown]
  - Alpha 1 foetoprotein increased [Unknown]
  - Hepatoblastoma [Unknown]
  - Ammonia increased [Unknown]
  - Hepatic steatosis [Fatal]
  - Hepatomegaly [Unknown]
